FAERS Safety Report 22292569 (Version 1)
Quarter: 2023Q2

REPORT INFORMATION
  Report Type: Spontaneous
  Country: US (occurrence: US)
  Receive Date: 20230508
  Receipt Date: 20230508
  Transmission Date: 20230722
  Serious: No
  Sender: FDA-Public Use
  Company Number: US-AUROBINDO-AUR-APL-2022-040766

PATIENT
  Age: 65 Year
  Sex: Male
  Weight: 102.04 kg

DRUGS (1)
  1. DEXTROMETHORPHAN HYDROBROMIDE AND GUAIFENESIN [Suspect]
     Active Substance: DEXTROMETHORPHAN HYDROBROMIDE\GUAIFENESIN
     Indication: COVID-19
     Dosage: 2 DOSAGE FORM, TWO TIMES A DAY (TWO TABLETS EVERY TWICE A DAY)
     Route: 065
     Dates: start: 20220926

REACTIONS (1)
  - Drug ineffective [Unknown]
